FAERS Safety Report 18511433 (Version 1)
Quarter: 2020Q4

REPORT INFORMATION
  Report Type: Spontaneous
  Country: US (occurrence: US)
  Receive Date: 20201117
  Receipt Date: 20201117
  Transmission Date: 20210114
  Serious: Yes (Death)
  Sender: FDA-Public Use
  Company Number: None

PATIENT
  Sex: Male

DRUGS (11)
  1. ROSUVASTATIN. [Concomitant]
     Active Substance: ROSUVASTATIN
  2. TRULANCE [Concomitant]
     Active Substance: PLECANATIDE
  3. CHLORTHALID [Concomitant]
     Active Substance: CHLORTHALIDONE
  4. HUMIRA [Suspect]
     Active Substance: ADALIMUMAB
     Indication: CROHN^S DISEASE
     Dosage: ?          OTHER FREQUENCY:WEEKLY;?
     Route: 058
     Dates: start: 20200403
  5. AZASAN [Concomitant]
     Active Substance: AZATHIOPRINE
  6. FENOFIBRATE. [Concomitant]
     Active Substance: FENOFIBRATE
  7. OMPERAZOLE [Concomitant]
     Active Substance: OMEPRAZOLE
  8. SCOPOLAMINE [Concomitant]
     Active Substance: SCOPOLAMINE
  9. MORPHINE [Concomitant]
     Active Substance: MORPHINE
  10. TAMSULOSIN [Concomitant]
     Active Substance: TAMSULOSIN
  11. ROPINROLE [Concomitant]
     Active Substance: ROPINIROLE

REACTIONS (1)
  - Death [None]
